FAERS Safety Report 5527535-2 (Version None)
Quarter: 2007Q4

REPORT INFORMATION
  Report Type: 
  Country: None (occurrence: None)
  Receive Date: 20071121
  Receipt Date: 20071108
  Transmission Date: 20080405
  Serious: Yes (Life-Threatening, Hospitalization)
  Sender: FDA-Public Use
  Company Number: CLOF-10744

PATIENT
  Age: 15 Year
  Sex: Female
  Weight: 94.3 kg

DRUGS (21)
  1. CLOFARABINE. MFR: GENZYME [Suspect]
     Indication: ACUTE LYMPHOCYTIC LEUKAEMIA
     Dosage: 80 MG QD IV
     Route: 042
     Dates: start: 20071030, end: 20071102
  2. ETOPOSIDE [Suspect]
     Indication: ACUTE LYMPHOCYTIC LEUKAEMIA
     Dosage: 200 MG QD IV
     Route: 042
     Dates: start: 20071030, end: 20071102
  3. CYCLOPHOSPHAMIDE [Suspect]
     Indication: ACUTE LYMPHOCYTIC LEUKAEMIA
     Dosage: 880 MG QD IV
     Route: 042
     Dates: start: 20071030, end: 20071102
  4. ACETAMINOPHEN [Concomitant]
  5. ACYCLOVIR [Concomitant]
  6. ALLOPURINOL [Concomitant]
  7. AMIKACIN [Concomitant]
  8. CALCITRIOL [Concomitant]
  9. CHLOROTHIAZIDE [Concomitant]
  10. DIPHENHYDRAMINE [Concomitant]
  11. ENALAPRIL [Concomitant]
  12. FUROSEMIDE [Concomitant]
  13. HYDROCORTISONE [Concomitant]
  14. NEUPOGEN [Concomitant]
  15. MEROPENEM [Concomitant]
  16. MORPHINE [Concomitant]
  17. VANCOMYCIN [Concomitant]
  18. VORICONAZOLE [Concomitant]
  19. BACTRIM DS. MFR: HOFFMAN-LA ROCHE, INC. [Concomitant]
  20. FUROSEMIDE [Concomitant]
  21. TACROLIMUS [Concomitant]

REACTIONS (22)
  - ACIDOSIS [None]
  - CAPILLARY LEAK SYNDROME [None]
  - CONTINUOUS HAEMODIAFILTRATION [None]
  - FEBRILE NEUTROPENIA [None]
  - HAEMATOCRIT DECREASED [None]
  - HAEMOGLOBIN DECREASED [None]
  - HEPATOSPLENOMEGALY [None]
  - HYPOTENSION [None]
  - HYPOXIA [None]
  - LUNG NEOPLASM [None]
  - MENTAL STATUS CHANGES [None]
  - NEPHROPATHY TOXIC [None]
  - OEDEMA [None]
  - PERICARDIAL EFFUSION [None]
  - PLATELET COUNT DECREASED [None]
  - PNEUMONIA [None]
  - PULMONARY OEDEMA [None]
  - RENAL FAILURE [None]
  - TACHYCARDIA [None]
  - VASODILATATION [None]
  - VENOOCCLUSIVE LIVER DISEASE [None]
  - WHITE BLOOD CELL COUNT DECREASED [None]
